FAERS Safety Report 5932069-7 (Version None)
Quarter: 2008Q4

REPORT INFORMATION
  Report Type: 
  Country: None (occurrence: None)
  Receive Date: 20081027
  Receipt Date: 20081015
  Transmission Date: 20090506
  Serious: Yes (Hospitalization)
  Sender: FDA-Public Use
  Company Number: AT-GILEAD-2008-0018451

PATIENT
  Age: 35 Year
  Sex: Male

DRUGS (4)
  1. TRUVADA [Suspect]
     Indication: HIV INFECTION
     Dates: start: 20071018
  2. ATAZANAVIR SULFATE [Concomitant]
     Indication: HIV INFECTION
     Dates: start: 20070101
  3. RITONAVIR [Concomitant]
     Indication: HIV INFECTION
     Dates: start: 20070101
  4. METFORMIN HYDROCHLORIDE [Concomitant]
     Indication: DIABETES MELLITUS

REACTIONS (3)
  - CD4 LYMPHOCYTES DECREASED [None]
  - MYALGIA [None]
  - SUBCUTANEOUS ABSCESS [None]
